FAERS Safety Report 15321382 (Version 1)
Quarter: 2018Q3

REPORT INFORMATION
  Report Type: Other
  Country: JP (occurrence: JP)
  Receive Date: 20180827
  Receipt Date: 20180827
  Transmission Date: 20181010
  Serious: Yes (Hospitalization, Other)
  Sender: FDA-Public Use
  Company Number: JP-ASPEN-GLO2018JP006166

PATIENT
  Age: 6 Year
  Sex: Male

DRUGS (5)
  1. D?MANNITOL [Concomitant]
     Active Substance: MANNITOL
     Indication: MENINGITIS BACTERIAL
     Route: 065
  2. DEXAMETHASONE. [Suspect]
     Active Substance: DEXAMETHASONE
     Indication: MENINGITIS BACTERIAL
     Route: 065
  3. MEROPENEM. [Suspect]
     Active Substance: MEROPENEM
     Indication: MENINGITIS BACTERIAL
     Route: 065
  4. GAMMA GLOBULIN [Concomitant]
     Active Substance: IMMUNE GLOBULIN NOS
     Indication: BRAIN OEDEMA
     Route: 065
  5. CEFOTAXIME [Concomitant]
     Active Substance: CEFOTAXIME SODIUM
     Indication: MENINGITIS BACTERIAL
     Route: 065

REACTIONS (4)
  - VIth nerve paralysis [Recovered/Resolved]
  - Infection [Recovering/Resolving]
  - Cardiac failure congestive [Recovering/Resolving]
  - Stress cardiomyopathy [Recovering/Resolving]
